APPROVED DRUG PRODUCT: RIFAMPIN
Active Ingredient: RIFAMPIN
Strength: 600MG/VIAL
Dosage Form/Route: INJECTABLE;INJECTION
Application: A091181 | Product #001 | TE Code: AP
Applicant: FRESENIUS KABI USA LLC
Approved: Aug 21, 2014 | RLD: No | RS: No | Type: RX